FAERS Safety Report 5448744-7 (Version None)
Quarter: 2007Q3

REPORT INFORMATION
  Report Type: 
  Country: None (occurrence: None)
  Receive Date: 20070911
  Receipt Date: 20070903
  Transmission Date: 20080115
  Serious: Yes (Hospitalization)
  Sender: FDA-Public Use
  Company Number: B0485561A

PATIENT
  Age: 79 Year
  Sex: Female

DRUGS (5)
  1. DEROXAT [Suspect]
     Indication: DRUG USE FOR UNKNOWN INDICATION
     Dosage: 10MG PER DAY
     Route: 048
     Dates: end: 20070814
  2. COTAREG [Suspect]
     Dosage: 1TAB PER DAY
     Route: 048
     Dates: end: 20070814
  3. ARICEPT [Suspect]
     Dosage: 10MG PER DAY
     Route: 048
     Dates: end: 20070814
  4. MEMANTINE HCL [Suspect]
     Dosage: 10MG PER DAY
     Route: 048
     Dates: end: 20070814
  5. RISPERDAL [Concomitant]
     Route: 065

REACTIONS (10)
  - BLOOD CREATININE INCREASED [None]
  - BLOOD GLUCOSE INCREASED [None]
  - BLOOD OSMOLARITY INCREASED [None]
  - BLOOD UREA INCREASED [None]
  - DEHYDRATION [None]
  - GLOSSODYNIA [None]
  - LUNG INFECTION [None]
  - MIOSIS [None]
  - RENAL FAILURE ACUTE [None]
  - SOMNOLENCE [None]
